FAERS Safety Report 5582659-9 (Version None)
Quarter: 2008Q1

REPORT INFORMATION
  Report Type: 
  Country: None (occurrence: None)
  Receive Date: 20080107
  Receipt Date: 20071228
  Transmission Date: 20080703
  Serious: Yes (Hospitalization, Other)
  Sender: FDA-Public Use
  Company Number: PHBS2007JP19815

PATIENT
  Age: 40 Year
  Sex: Female

DRUGS (5)
  1. TEGRETOL [Suspect]
     Indication: TRIGEMINAL NEURALGIA
     Dosage: 400 MG, QD
     Route: 048
     Dates: start: 20071109, end: 20071118
  2. TAKEPRON [Concomitant]
     Indication: GASTRITIS
     Dosage: 15 MG, UNK
     Route: 048
     Dates: start: 20071102, end: 20071107
  3. CYANOCOBALAMIN [Concomitant]
     Indication: TRIGEMINAL NEURALGIA
     Dosage: 4500 UG, UNK
     Route: 048
     Dates: start: 20071102
  4. PREDNISOLONE [Concomitant]
     Indication: TRIGEMINAL NEURALGIA
     Dosage: 50 MG, UNK
     Route: 048
     Dates: start: 20071102, end: 20071107
  5. PREDNISOLONE [Concomitant]
     Dosage: 20 MG, UNK
     Route: 048
     Dates: start: 20071102, end: 20071107

REACTIONS (8)
  - ALANINE AMINOTRANSFERASE INCREASED [None]
  - ASPARTATE AMINOTRANSFERASE INCREASED [None]
  - BLOOD ALKALINE PHOSPHATASE INCREASED [None]
  - BLOOD LACTATE DEHYDROGENASE INCREASED [None]
  - GAMMA-GLUTAMYLTRANSFERASE INCREASED [None]
  - LIVER DISORDER [None]
  - PYREXIA [None]
  - RASH [None]
